FAERS Safety Report 15184498 (Version 1)
Quarter: 2018Q3

REPORT INFORMATION
  Report Type: Spontaneous
  Country: US (occurrence: US)
  Receive Date: 20180723
  Receipt Date: 20180723
  Transmission Date: 20181010
  Serious: No
  Sender: FDA-Public Use
  Company Number: US-AMGEN-USASP2018080107

PATIENT
  Sex: Female

DRUGS (1)
  1. REPATHA [Suspect]
     Active Substance: EVOLOCUMAB
     Indication: HYPERLIPIDAEMIA
     Dosage: 140 MG, Q2WK
     Route: 065

REACTIONS (7)
  - Abdominal pain upper [Unknown]
  - Erythema [Unknown]
  - Gait disturbance [Unknown]
  - Contusion [Unknown]
  - Back pain [Unknown]
  - Pruritus [Unknown]
  - Pain in extremity [Unknown]
